FAERS Safety Report 5896077-7 (Version None)
Quarter: 2008Q3

REPORT INFORMATION
  Report Type: 
  Country: None (occurrence: None)
  Receive Date: 20080827
  Receipt Date: 20080724
  Transmission Date: 20090109
  Serious: Yes (Disabling, Other)
  Sender: FDA-Public Use
  Company Number: PHEH2008US04588

PATIENT
  Age: 56 Year
  Sex: Female
  Weight: 57.1 kg

DRUGS (12)
  1. RECLAST [Suspect]
     Indication: OSTEOPOROSIS
     Dosage: 5 MG IV, INFUSION
     Route: 042
     Dates: start: 20080417
  2. CALCIUM CITRATE (CALCIUM CITRATE) [Concomitant]
  3. VAGIFEM [Concomitant]
  4. KLONOPIN [Concomitant]
  5. PROVIGIL [Concomitant]
  6. AMITIZA [Concomitant]
  7. ZYFLO [Concomitant]
  8. ZYRTEC [Concomitant]
  9. SINGULAIR [Concomitant]
  10. RINOCORT (BECLOMETASONE DIPROPIONATE) [Concomitant]
  11. ADVAIR DISKUS 100/50 [Concomitant]
  12. SPIRIVA [Concomitant]

REACTIONS (10)
  - ARTHRALGIA [None]
  - FATIGUE [None]
  - INFLUENZA LIKE ILLNESS [None]
  - JOINT SWELLING [None]
  - MALAISE [None]
  - NAUSEA [None]
  - PAIN [None]
  - PYREXIA [None]
  - RENAL FAILURE [None]
  - SOMNOLENCE [None]
